FAERS Safety Report 21264442 (Version 1)
Quarter: 2022Q3

REPORT INFORMATION
  Report Type: Spontaneous
  Country: CN (occurrence: CN)
  Receive Date: 20220829
  Receipt Date: 20220829
  Transmission Date: 20221027
  Serious: Yes (Other)
  Sender: FDA-Public Use
  Company Number: CN-UCBSA-2022048382

PATIENT
  Age: 24 Month
  Sex: Male

DRUGS (8)
  1. KEPPRA [Suspect]
     Active Substance: LEVETIRACETAM
     Indication: Status epilepticus
     Dosage: UNK
     Route: 048
  2. PHENOBARBITAL [Concomitant]
     Active Substance: PHENOBARBITAL
     Indication: Status epilepticus
     Dosage: UNK
     Route: 042
  3. VALPROATE [Concomitant]
     Active Substance: VALPROIC ACID
     Indication: Status epilepticus
  4. MIDAZOLAM [Concomitant]
     Active Substance: MIDAZOLAM
     Indication: Status epilepticus
  5. PROPOFOL [Concomitant]
     Active Substance: PROPOFOL
     Indication: Status epilepticus
  6. OXCARBAZEPINE [Concomitant]
     Active Substance: OXCARBAZEPINE
     Indication: Status epilepticus
     Route: 048
  7. TOPIRAMATE [Concomitant]
     Active Substance: TOPIRAMATE
     Indication: Status epilepticus
     Route: 048
  8. PERAMPANEL [Concomitant]
     Active Substance: PERAMPANEL
     Indication: Status epilepticus
     Route: 048

REACTIONS (3)
  - Cognitive disorder [Recovering/Resolving]
  - Movement disorder [Recovering/Resolving]
  - Product use in unapproved indication [Unknown]
